FAERS Safety Report 9900941 (Version 1)
Quarter: 2014Q1

REPORT INFORMATION
  Report Type: Report from Study
  Country: US (occurrence: US)
  Receive Date: 20140217
  Receipt Date: 20140217
  Transmission Date: 20141002
  Serious: No
  Sender: FDA-Public Use
  Company Number: US-ABBVIE-13P-163-1071287-00

PATIENT
  Sex: Female
  Weight: 66.74 kg

DRUGS (2)
  1. SIMCOR [Suspect]
     Indication: LOW DENSITY LIPOPROTEIN INCREASED
     Dosage: 500/20 AT BEDTIME
     Dates: start: 2011
  2. MULTIVITAMINS [Concomitant]
     Indication: PRODUCT USED FOR UNKNOWN INDICATION

REACTIONS (6)
  - Pharyngeal oedema [Unknown]
  - Oropharyngeal pain [Unknown]
  - Dry throat [Unknown]
  - Flushing [Recovered/Resolved]
  - Rash generalised [Recovered/Resolved]
  - Headache [Recovered/Resolved]
